FAERS Safety Report 4750350-4 (Version None)
Quarter: 2005Q3

REPORT INFORMATION
  Report Type: 
  Country: None (occurrence: None)
  Receive Date: 20050818
  Receipt Date: 20050805
  Transmission Date: 20060218
  Serious: Yes (Hospitalization, Other)
  Sender: FDA-Public Use
  Company Number: 2004JP001797

PATIENT
  Age: 61 Year
  Sex: Female
  Weight: 38.5 kg

DRUGS (10)
  1. PROGRAF [Suspect]
     Indication: LIVER TRANSPLANT
     Dosage: 3.00 MG, BID, ORAL
     Route: 048
     Dates: start: 20030708
  2. PREDNISOLONE [Concomitant]
  3. CELLCEPT [Concomitant]
  4. OMEPRAZOLE [Concomitant]
  5. URSODIOL [Concomitant]
  6. COTRIM [Concomitant]
  7. DIFLUCAN [Concomitant]
  8. MAALOX (ALUMINUM HYDROXIDE GEL) [Concomitant]
  9. SUCRALFATE [Concomitant]
  10. ONE-ALPHA (ALFACALCIDOL) [Concomitant]

REACTIONS (12)
  - ABDOMINAL DISTENSION [None]
  - CYTOMEGALOVIRUS INFECTION [None]
  - DEHYDRATION [None]
  - DIARRHOEA [None]
  - GRAFT VERSUS HOST DISEASE [None]
  - INFLAMMATION [None]
  - LUMBAR VERTEBRAL FRACTURE [None]
  - PNEUMATOSIS INTESTINALIS [None]
  - PNEUMOCYSTIS JIROVECI PNEUMONIA [None]
  - PNEUMOPERITONEUM [None]
  - RENAL TUBULAR ACIDOSIS [None]
  - SPINAL COMPRESSION FRACTURE [None]
